FAERS Safety Report 7763768-2 (Version None)
Quarter: 2011Q3

REPORT INFORMATION
  Report Type: 
  Country: None (occurrence: None)
  Receive Date: 20110919
  Receipt Date: 20090428
  Transmission Date: 20111222
  Serious: Yes (Death, Other)
  Sender: FDA-Public Use
  Company Number: 2009SP008931

PATIENT
  Age: 60 Year
  Sex: Female
  Weight: 41 kg

DRUGS (17)
  1. SULFAMETHOXAZOLE [Concomitant]
  2. NATEGLINIDE [Concomitant]
  3. GLYCEOL  /00744501/ [Concomitant]
  4. RINDERON /00008501/ [Concomitant]
  5. GLUCOBAY [Concomitant]
  6. MAGMITT [Concomitant]
  7. FAMOTIDINE [Concomitant]
  8. CRESTOR [Concomitant]
  9. TEMODAL [Suspect]
     Indication: ANAPLASTIC ASTROCYTOMA
     Dosage: 75 MG/M2;QD;PO, 150 MG/M2;QD;PO
     Route: 048
     Dates: start: 20080421, end: 20090605
  10. TEMODAL [Suspect]
     Indication: ANAPLASTIC ASTROCYTOMA
     Dosage: 75 MG/M2;QD;PO, 150 MG/M2;QD;PO
     Route: 048
     Dates: start: 20080924, end: 20090928
  11. TEMODAL [Suspect]
     Indication: ANAPLASTIC ASTROCYTOMA
     Dosage: 75 MG/M2;QD;PO, 150 MG/M2;QD;PO
     Route: 048
     Dates: start: 20080827, end: 20080831
  12. TEMODAL [Suspect]
     Indication: ANAPLASTIC ASTROCYTOMA
     Dosage: 75 MG/M2;QD;PO, 150 MG/M2;QD;PO
     Route: 048
     Dates: start: 20080729, end: 20080802
  13. PREDNISOLONE [Concomitant]
  14. MUCOSTA [Concomitant]
  15. HUMULIN R [Concomitant]
  16. PURSENNID /00142207/ [Concomitant]
  17. TEGRETOL [Concomitant]

REACTIONS (1)
  - C-REACTIVE PROTEIN INCREASED [None]
